FAERS Safety Report 6537488-6 (Version None)
Quarter: 2009Q4

REPORT INFORMATION
  Report Type: 
  Country: None (occurrence: None)
  Receive Date: 20091229
  Receipt Date: 20091007
  Transmission Date: 20100525
  Serious: No
  Sender: FDA-Public Use
  Company Number: 1000009331

PATIENT
  Age: 61 Year
  Sex: Male

DRUGS (7)
  1. BYSTOLIC [Suspect]
     Indication: HYPERTENSION
     Dosage: 5 MG (5 MG, 1 IN 1 D),ORAL
     Route: 048
     Dates: start: 20090902, end: 20090902
  2. BYSTOLIC [Suspect]
     Indication: HYPERTENSION
     Dosage: 2.5 MG (2.5 MG, 1 IN 1 D),ORAL
     Route: 048
     Dates: start: 20090903, end: 20090929
  3. LEVOTHROID [Concomitant]
  4. CYTOMEL [Concomitant]
  5. PROTONIX [Concomitant]
  6. KLONOPIN [Concomitant]
  7. PROSCAR [Concomitant]

REACTIONS (4)
  - ABDOMINAL DISTENSION [None]
  - ERUCTATION [None]
  - FLATULENCE [None]
  - HEADACHE [None]
